APPROVED DRUG PRODUCT: METRONIDAZOLE
Active Ingredient: METRONIDAZOLE
Strength: 1%
Dosage Form/Route: GEL;TOPICAL
Application: A090903 | Product #001
Applicant: CHARTWELL RX SCIENCES LLC
Approved: Jul 22, 2011 | RLD: No | RS: No | Type: DISCN